FAERS Safety Report 12590370 (Version 2)
Quarter: 2016Q3

REPORT INFORMATION
  Report Type: Report from Study
  Country: JP (occurrence: JP)
  Receive Date: 20160725
  Receipt Date: 20160926
  Transmission Date: 20161109
  Serious: No
  Sender: FDA-Public Use
  Company Number: JP-B.I. PHARMACEUTICALS,INC./RIDGEFIELD-2016-BI-48058NB

PATIENT
  Age: 71 Year
  Sex: Female
  Weight: 47 kg

DRUGS (7)
  1. TAKEPRON [Concomitant]
     Active Substance: LANSOPRAZOLE
     Indication: PRODUCT USED FOR UNKNOWN INDICATION
     Dosage: 15 MG
     Route: 065
  2. PIRESPA [Concomitant]
     Active Substance: PIRFENIDONE
     Dosage: 1800 MG
     Route: 065
     Dates: start: 20140526
  3. OFEV [Suspect]
     Active Substance: NINTEDANIB
     Indication: IDIOPATHIC PULMONARY FIBROSIS
     Dosage: 300 MG
     Route: 048
     Dates: start: 20160329, end: 20160425
  4. LAC-B [Concomitant]
     Active Substance: BIFIDOBACTERIUM SPP.
     Indication: PRODUCT USED FOR UNKNOWN INDICATION
     Dosage: 2 G
     Route: 065
     Dates: start: 20160329
  5. OFEV [Suspect]
     Active Substance: NINTEDANIB
     Dosage: 200 MG
     Route: 048
     Dates: start: 20160426
  6. PIRESPA [Concomitant]
     Active Substance: PIRFENIDONE
     Dosage: 1200 MG
     Route: 065
     Dates: start: 20140507, end: 20140526
  7. PIRESPA [Concomitant]
     Active Substance: PIRFENIDONE
     Indication: IDIOPATHIC PULMONARY FIBROSIS
     Dosage: 600 MG
     Route: 065
     Dates: start: 20140421, end: 20140507

REACTIONS (2)
  - Eosinophil count increased [Recovered/Resolved]
  - Liver function test abnormal [Recovered/Resolved]

NARRATIVE: CASE EVENT DATE: 20160425
